FAERS Safety Report 7246410-9 (Version None)
Quarter: 2011Q1

REPORT INFORMATION
  Report Type: 
  Country: None (occurrence: None)
  Receive Date: 20110126
  Receipt Date: 20101015
  Transmission Date: 20110831
  Serious: No
  Sender: FDA-Public Use
  Company Number: US-BAUSCH-2010BL005834

PATIENT
  Age: 67 Year
  Sex: Female

DRUGS (2)
  1. ZYLET [Suspect]
     Indication: OFF LABEL USE
     Route: 047
     Dates: start: 20100430, end: 20101014
  2. ZYLET [Suspect]
     Indication: DACRYOSTENOSIS ACQUIRED
     Route: 047
     Dates: start: 20100430, end: 20101014

REACTIONS (2)
  - OCULAR HYPERAEMIA [None]
  - VISUAL ACUITY REDUCED TRANSIENTLY [None]
